FAERS Safety Report 7735390-5 (Version None)
Quarter: 2011Q3

REPORT INFORMATION
  Report Type: 
  Country: None (occurrence: None)
  Receive Date: 20110907
  Receipt Date: 20110901
  Transmission Date: 20111222
  Serious: Yes (Other)
  Sender: FDA-Public Use
  Company Number: NL-PFIZER INC-2011204012

PATIENT
  Age: 78 Year
  Sex: Male

DRUGS (2)
  1. TOLTERODINE TARTRATE [Suspect]
     Indication: URINARY INCONTINENCE
     Dosage: 4 MG, UNK
  2. AVODART [Concomitant]
     Dosage: UNK

REACTIONS (3)
  - FAECES DISCOLOURED [None]
  - HAEMORRHOIDS [None]
  - DRUG INEFFECTIVE [None]
